FAERS Safety Report 12900434 (Version 3)
Quarter: 2017Q1

REPORT INFORMATION
  Report Type: Report from Study
  Country: US (occurrence: US)
  Receive Date: 20161101
  Receipt Date: 20170331
  Transmission Date: 20170428
  Serious: Yes (Hospitalization)
  Sender: FDA-Public Use
  Company Number: US-ACTELION-A-NJ2016-144508

PATIENT
  Age: 67 Year
  Sex: Female
  Weight: 77.55 kg

DRUGS (4)
  1. OXYGEN. [Concomitant]
     Active Substance: OXYGEN
  2. REVATIO [Concomitant]
     Active Substance: SILDENAFIL CITRATE
  3. COUMADIN [Concomitant]
     Active Substance: WARFARIN SODIUM
  4. OPSUMIT [Suspect]
     Active Substance: MACITENTAN
     Indication: PULMONARY ARTERIAL HYPERTENSION
     Dosage: 10 MG, UNK
     Route: 048
     Dates: start: 20151110

REACTIONS (4)
  - Pleural effusion [Unknown]
  - Pneumonia [Unknown]
  - Fluid retention [Unknown]
  - Cardiac failure congestive [Unknown]

NARRATIVE: CASE EVENT DATE: 20161013
